FAERS Safety Report 9210945 (Version 1)
Quarter: 2013Q2

REPORT INFORMATION
  Report Type: Spontaneous
  Country: DE (occurrence: DE)
  Receive Date: 20130404
  Receipt Date: 20130404
  Transmission Date: 20140414
  Serious: Yes (Congenital Anomaly)
  Sender: FDA-Public Use
  Company Number: GXKR2013DE001318

PATIENT
  Sex: 0

DRUGS (9)
  1. LAMOTRIGINE [Suspect]
     Indication: EPILEPSY
     Dosage: 50 [MG/D ]/  DOSE NOT EXACTLY KNOWN; 50-300 MG/D (GW0-GW19.4)
     Route: 064
     Dates: start: 20080922, end: 20090206
  2. ERGENYL CHRONO [Suspect]
     Indication: EPILEPSY
     Dosage: 3000 [MG/D ] (GW0-GW14.2)
     Route: 064
     Dates: start: 20080922, end: 20081231
  3. KEPPRA [Suspect]
     Indication: EPILEPSY
     Dosage: 4000 [MG/D ] (GW0-GW20.4)
     Route: 064
     Dates: start: 20080922, end: 20090213
  4. PHENYTOIN [Suspect]
     Indication: EPILEPSY
     Dosage: 300 [MG/D ] (GW0-GW20.4)
     Route: 064
     Dates: start: 20080922, end: 20090213
  5. FRISIUM [Suspect]
     Indication: EPILEPSY
     Dosage: 20 [MG/D ] (GW0-GW20.4)
     Route: 064
     Dates: start: 20080922, end: 20090213
  6. LUMINAL [Suspect]
     Indication: EPILEPSY
     Dosage: 50 [MG/D ] (GW0-GW20.4)
     Route: 064
     Dates: start: 20080922, end: 20090213
  7. TAVOR [Suspect]
     Indication: SLEEP DISORDER
     Dosage: AS NEEDED (GW0-GW19.4)
     Route: 064
  8. VIMPAT [Concomitant]
     Indication: EPILEPSY
     Dosage: UNK UKN, UNK (GW16-GW19.2)
     Route: 064
     Dates: end: 20090204
  9. THYROXIN [Concomitant]
     Indication: HYPOTHYROIDISM
     Dosage: UNK UKN, UNK (GW0-GW20)
     Route: 064

REACTIONS (6)
  - Spina bifida [Not Recovered/Not Resolved]
  - Limb malformation [Not Recovered/Not Resolved]
  - Microcephaly [Not Recovered/Not Resolved]
  - Cleft lip and palate [Not Recovered/Not Resolved]
  - Maternal drugs affecting foetus [None]
  - Abortion induced [None]
